FAERS Safety Report 11631728 (Version 3)
Quarter: 2015Q4

REPORT INFORMATION
  Report Type: Report from Study
  Country: US (occurrence: US)
  Receive Date: 20151015
  Receipt Date: 20151210
  Transmission Date: 20160304
  Serious: No
  Sender: FDA-Public Use
  Company Number: US-AMGEN-USASL2015103305

PATIENT
  Age: 41 Year
  Sex: Female

DRUGS (1)
  1. ENBREL [Suspect]
     Active Substance: ETANERCEPT
     Indication: RHEUMATOID ARTHRITIS
     Dosage: 50 MG, QWK
     Route: 065
     Dates: start: 20150928

REACTIONS (14)
  - Injection site pain [Unknown]
  - Musculoskeletal stiffness [Unknown]
  - Injection site bruising [Not Recovered/Not Resolved]
  - Injection site mass [Recovering/Resolving]
  - Arthralgia [Not Recovered/Not Resolved]
  - Peripheral swelling [Unknown]
  - Injection site haemorrhage [Unknown]
  - Injection site extravasation [Unknown]
  - Joint stiffness [Unknown]
  - Injection site induration [Recovering/Resolving]
  - Joint swelling [Unknown]
  - Nasopharyngitis [Unknown]
  - Drug dose omission [Unknown]
  - Injection site discolouration [Recovered/Resolved]

NARRATIVE: CASE EVENT DATE: 2015
